FAERS Safety Report 4314320-2 (Version None)
Quarter: 2004Q1

REPORT INFORMATION
  Report Type: 
  Country: None (occurrence: None)
  Receive Date: 20040309
  Receipt Date: 20031021
  Transmission Date: 20041129
  Serious: Yes (Hospitalization)
  Sender: FDA-Public Use
  Company Number: WAES 0310AUT00010

PATIENT
  Age: 43 Year
  Sex: Male

DRUGS (2)
  1. [COMPOSITION UNSPECIFIED] [Concomitant]
  2. SINGULAIR [Suspect]
     Indication: ASTHMA
     Route: 048

REACTIONS (10)
  - ALLERGIC GRANULOMATOUS ANGIITIS [None]
  - CARDIOMYOPATHY [None]
  - DILATATION VENTRICULAR [None]
  - ENDOCARDITIS FIBROPLASTICA [None]
  - MITRAL VALVE INCOMPETENCE [None]
  - PERICARDIAL EFFUSION [None]
  - RESPIRATORY FAILURE [None]
  - SINUS TACHYCARDIA [None]
  - TRICUSPID VALVE INCOMPETENCE [None]
  - VENTRICULAR DYSFUNCTION [None]
